FAERS Safety Report 13686868 (Version 3)
Quarter: 2017Q4

REPORT INFORMATION
  Report Type: Spontaneous
  Country: ID (occurrence: ID)
  Receive Date: 20170623
  Receipt Date: 20171008
  Transmission Date: 20180320
  Serious: Yes (Other)
  Sender: FDA-Public Use
  Company Number: ID-BRISTOL-MYERS SQUIBB COMPANY-BMS-2017-055347

PATIENT
  Age: 22 Year
  Sex: Female

DRUGS (2)
  1. FRIMANIA [Suspect]
     Active Substance: LITHIUM CARBONATE
     Indication: MOOD ALTERED
     Dosage: 400 MG, UNK
     Route: 048
     Dates: start: 20170118, end: 201705
  2. ABILIFY [Suspect]
     Active Substance: ARIPIPRAZOLE
     Indication: BIPOLAR DISORDER
     Dosage: 10 MG, UNK
     Route: 048
     Dates: start: 20170118, end: 201705

REACTIONS (4)
  - Prescribed underdose [Unknown]
  - Rash maculo-papular [Unknown]
  - Stevens-Johnson syndrome [Unknown]
  - Pyrexia [Unknown]

NARRATIVE: CASE EVENT DATE: 201705
